FAERS Safety Report 24137498 (Version 1)
Quarter: 2024Q3

REPORT INFORMATION
  Report Type: Spontaneous
  Country: AR (occurrence: AR)
  Receive Date: 20240725
  Receipt Date: 20240725
  Transmission Date: 20241016
  Serious: Yes (Hospitalization)
  Sender: MERCK
  Company Number: AR-MERCK SHARP + DOHME LLC-2405ARG008390

PATIENT
  Age: 52 Year
  Sex: Male
  Weight: 80 kg

DRUGS (2)
  1. PEMBROLIZUMAB [Suspect]
     Active Substance: PEMBROLIZUMAB
     Indication: Renal cancer
     Dosage: UNK
     Dates: start: 202402
  2. AXITINIB [Suspect]
     Active Substance: AXITINIB
     Indication: Renal cancer
     Dosage: UNK
     Dates: start: 202402

REACTIONS (2)
  - Infection [Unknown]
  - Blister [Unknown]

NARRATIVE: CASE EVENT DATE: 20240101
